FAERS Safety Report 23902027 (Version 1)
Quarter: 2024Q2

REPORT INFORMATION
  Report Type: Spontaneous
  Country: US (occurrence: None)
  Receive Date: 20240526
  Receipt Date: 20240526
  Transmission Date: 20240716
  Serious: No
  Sender: FDA-Public Use
  Company Number: US-ROCHE-3502515

PATIENT
  Sex: Female

DRUGS (22)
  1. ACTEMRA [Suspect]
     Active Substance: TOCILIZUMAB
     Indication: Chronic respiratory failure
     Dosage: FORM STRENGTH: 162 MG/ 0.9 ML
     Route: 058
     Dates: start: 20230516
  2. ACTEMRA [Suspect]
     Active Substance: TOCILIZUMAB
  3. ACTEMRA [Suspect]
     Active Substance: TOCILIZUMAB
     Indication: Hypoxia
  4. ACTEMRA [Suspect]
     Active Substance: TOCILIZUMAB
  5. DULCOFLEX TABLET [Concomitant]
  6. ALBUTEROL [Concomitant]
     Active Substance: ALBUTEROL
  7. AMITRIPTYLINE [Concomitant]
     Active Substance: AMITRIPTYLINE
  8. CEQUR SIMPLICITY [Concomitant]
  9. CITALOPRAM [Concomitant]
     Active Substance: CITALOPRAM\CITALOPRAM HYDROBROMIDE
  10. DICLOFENAC [Concomitant]
     Active Substance: DICLOFENAC
  11. DULOXETINE [Concomitant]
     Active Substance: DULOXETINE
  12. FLAREX [Concomitant]
     Active Substance: FLUOROMETHOLONE ACETATE
  13. GABAPENTIN [Concomitant]
     Active Substance: GABAPENTIN
  14. MELOXICAM [Concomitant]
     Active Substance: MELOXICAM
  15. MOTEGRITY [Concomitant]
     Active Substance: PRUCALOPRIDE SUCCINATE
  16. MYCOPHENOLIC ACID [Concomitant]
     Active Substance: MYCOPHENOLIC ACID
  17. NOVOLOG [Concomitant]
     Active Substance: INSULIN ASPART
  18. OMEPRAZOLE [Concomitant]
     Active Substance: DONEPEZIL HYDROCHLORIDE\OMEPRAZOLE\OMEPRAZOLE MAGNESIUM
  19. OXYCODONE HYDROCHLORIDE [Concomitant]
     Active Substance: OXYCODONE HYDROCHLORIDE
  20. PROMETHAZINE [Concomitant]
     Active Substance: PROMETHAZINE HYDROCHLORIDE
  21. VICTOZA [Concomitant]
     Active Substance: LIRAGLUTIDE
     Dosage: FORM STRENGTH: 18 MG/ 3 ML
  22. XTAMPZA ER [Concomitant]
     Active Substance: OXYCODONE

REACTIONS (3)
  - Off label use [Unknown]
  - Asthenia [Unknown]
  - Dry mouth [Unknown]
